FAERS Safety Report 22751683 (Version 2)
Quarter: 2023Q4

REPORT INFORMATION
  Report Type: Report from Study
  Country: JP (occurrence: JP)
  Receive Date: 20230726
  Receipt Date: 20231116
  Transmission Date: 20240110
  Serious: Yes (Hospitalization)
  Sender: FDA-Public Use
  Company Number: JP-ARGENX-2022-ARGX-JP001709

PATIENT

DRUGS (14)
  1. VYVGART [Suspect]
     Active Substance: EFGARTIGIMOD ALFA-FCAB
     Indication: Myasthenia gravis
     Dosage: 800 MG
     Route: 041
     Dates: start: 20220817, end: 20220907
  2. VYVGART [Suspect]
     Active Substance: EFGARTIGIMOD ALFA-FCAB
     Dosage: UNK
     Route: 041
     Dates: start: 202305
  3. VYVGART [Suspect]
     Active Substance: EFGARTIGIMOD ALFA-FCAB
     Dosage: UNK
     Route: 041
     Dates: start: 202308
  4. VYVGART [Suspect]
     Active Substance: EFGARTIGIMOD ALFA-FCAB
     Dosage: UNK
     Route: 041
     Dates: start: 202310
  5. NEORAL [Concomitant]
     Active Substance: CYCLOSPORINE
     Indication: Myasthenia gravis
     Dosage: 2 DF, DAILY, AFTER DINNER
     Route: 048
  6. PREDONINE [Concomitant]
     Active Substance: PREDNISOLONE
     Indication: Myasthenia gravis
     Dosage: UNK
     Route: 048
     Dates: start: 202202
  7. PREDONINE [Concomitant]
     Active Substance: PREDNISOLONE
     Dosage: 25 MG
     Route: 048
     Dates: start: 202203
  8. PREDONINE [Concomitant]
     Active Substance: PREDNISOLONE
     Dosage: 30 MG, DAILY, AFTER BREAKFAST
     Route: 048
     Dates: start: 202205, end: 20220907
  9. PREDONINE [Concomitant]
     Active Substance: PREDNISOLONE
     Dosage: 25 MG, DAILY, AFTER BREAKFAST
     Route: 048
     Dates: start: 20220908, end: 20221013
  10. PREDONINE [Concomitant]
     Active Substance: PREDNISOLONE
     Dosage: 27.5 MG, DAILY, AFTER BREAKFAST
     Route: 048
     Dates: start: 20221014, end: 20221207
  11. PREDONINE [Concomitant]
     Active Substance: PREDNISOLONE
     Dosage: 25 MG, DAILY, AFTER BREAKFAST
     Route: 048
     Dates: start: 20221208
  12. PREDONINE [Concomitant]
     Active Substance: PREDNISOLONE
     Dosage: 20 MG
     Route: 048
     Dates: start: 202308
  13. VICTOZA [Concomitant]
     Active Substance: LIRAGLUTIDE
     Indication: Product used for unknown indication
     Dosage: 0.9 MG, DAILY, MORNING
     Route: 058
  14. TACROLIMUS [Concomitant]
     Active Substance: TACROLIMUS
     Indication: Myasthenia gravis
     Dosage: UNK
     Route: 065
     Dates: start: 202202

REACTIONS (3)
  - Symptom recurrence [Recovered/Resolved]
  - Intentional product use issue [Unknown]
  - Therapeutic product effect incomplete [Unknown]

NARRATIVE: CASE EVENT DATE: 20220817
